FAERS Safety Report 6602427-6 (Version None)
Quarter: 2010Q1

REPORT INFORMATION
  Report Type: 
  Country: None (occurrence: None)
  Receive Date: 20100225
  Receipt Date: 20100223
  Transmission Date: 20100710
  Serious: Yes (Other)
  Sender: FDA-Public Use
  Company Number: A0845860A

PATIENT
  Age: 71 Year
  Sex: Male

DRUGS (1)
  1. ALLI [Suspect]
     Indication: WEIGHT LOSS DIET
     Route: 048
     Dates: start: 20100201

REACTIONS (4)
  - DIARRHOEA [None]
  - FLATULENCE [None]
  - HAEMORRHOIDS [None]
  - RECTAL HAEMORRHAGE [None]
